FAERS Safety Report 8086007-4 (Version None)
Quarter: 2012Q1

REPORT INFORMATION
  Report Type: 
  Country: None (occurrence: None)
  Receive Date: 20120128
  Receipt Date: 20110418
  Transmission Date: 20120608
  Serious: No
  Sender: FDA-Public Use
  Company Number: US-ABBOTT-11P-163-0718892-00

PATIENT
  Sex: Female
  Weight: 102.15 kg

DRUGS (5)
  1. HUMIRA [Suspect]
     Indication: PSORIASIS
     Dates: start: 20110404
  2. HUMIRA [Suspect]
     Dates: start: 20110311, end: 20110311
  3. ESTRADIOL [Concomitant]
     Indication: PRODUCT USED FOR UNKNOWN INDICATION
  4. BYSTOLIC [Concomitant]
     Indication: HYPERTENSION
  5. PROZAC [Concomitant]
     Indication: DEPRESSION

REACTIONS (3)
  - BLOOD PRESSURE INCREASED [None]
  - SINUSITIS [None]
  - HEADACHE [None]
